FAERS Safety Report 5510540-X (Version None)
Quarter: 2007Q4

REPORT INFORMATION
  Report Type: 
  Country: None (occurrence: None)
  Receive Date: 20071108
  Receipt Date: 20071031
  Transmission Date: 20080405
  Serious: Yes (Hospitalization)
  Sender: FDA-Public Use
  Company Number: US-ELI_LILLY_AND_COMPANY-US200710007696

PATIENT
  Sex: Male

DRUGS (3)
  1. HUMALOG [Suspect]
     Dosage: 5 U, 3/D
     Dates: start: 20070901
  2. HUMALOG [Suspect]
     Dosage: UNK, AS NEEDED
     Dates: start: 20071001
  3. LANTUS [Concomitant]

REACTIONS (1)
  - KETOACIDOSIS [None]
